FAERS Safety Report 9381414 (Version 2)
Quarter: 2013Q3

REPORT INFORMATION
  Report Type: Report from Study
  Country: US (occurrence: US)
  Receive Date: 20130703
  Receipt Date: 20130930
  Transmission Date: 20140515
  Serious: Yes (Hospitalization, Other)
  Sender: FDA-Public Use
  Company Number: PHHO2013US007120

PATIENT
  Age: 51 Year
  Sex: Female
  Weight: 121.54 kg

DRUGS (5)
  1. GILENYA [Suspect]
     Indication: MULTIPLE SCLEROSIS
     Dosage: 0.5 MG, QD
     Route: 048
     Dates: start: 20130502, end: 20130526
  2. AMITRIPTYLINE [Concomitant]
     Dosage: 50 MG, QHS
  3. GABAPENTIN [Concomitant]
     Indication: PAIN
     Dosage: 300 G, QID
  4. AMPYRA [Concomitant]
     Indication: GAIT DISTURBANCE
     Dosage: 10 G, Q12H
     Dates: start: 201201
  5. TRAMADOL [Concomitant]
     Indication: PAIN
     Dosage: 50 MG, Q8H

REACTIONS (1)
  - Acute myocardial infarction [Recovered/Resolved with Sequelae]
